FAERS Safety Report 8470563-8 (Version None)
Quarter: 2012Q2

REPORT INFORMATION
  Report Type: 
  Country: None (occurrence: None)
  Receive Date: 20120627
  Receipt Date: 20120621
  Transmission Date: 20120825
  Serious: Yes (Other)
  Sender: FDA-Public Use
  Company Number: PHEH2012US012525

PATIENT
  Sex: Male

DRUGS (5)
  1. TEGRETOL [Suspect]
     Dosage: 100 MG, UNK
  2. CARBAMAZEPINE [Suspect]
  3. ATIVAN [Concomitant]
  4. ANTIBIOTICS [Concomitant]
  5. NEXIUM [Concomitant]

REACTIONS (4)
  - NAUSEA [None]
  - CONVULSION [None]
  - BLOOD SODIUM DECREASED [None]
  - WRONG TECHNIQUE IN DRUG USAGE PROCESS [None]
